FAERS Safety Report 17957052 (Version 1)
Quarter: 2020Q2

REPORT INFORMATION
  Report Type: Spontaneous
  Country: GB (occurrence: GB)
  Receive Date: 20200629
  Receipt Date: 20200629
  Transmission Date: 20200714
  Serious: Yes (Hospitalization, Other)
  Sender: FDA-Public Use
  Company Number: GB-MYLANLABS-2020M1060245

PATIENT
  Age: 61 Year
  Sex: Female
  Weight: 123.94 kg

DRUGS (11)
  1. PIOGLITAZONE. [Concomitant]
     Active Substance: PIOGLITAZONE
     Dosage: 1 DOSAGE FORM, QD (1 TABLET, MORNING)
  2. ATORVASTATIN [Concomitant]
     Active Substance: ATORVASTATIN
     Dosage: UNK
  3. AMLODIPINE [Concomitant]
     Active Substance: AMLODIPINE BESYLATE
     Dosage: 1 DOSAGE FORM, QD (1 TABLET, ONCE DAILY)
  4. FERROUS FUMARATE [Concomitant]
     Active Substance: FERROUS FUMARATE
     Dosage: UNK
  5. BUMETANIDE. [Suspect]
     Active Substance: BUMETANIDE
     Indication: BLOOD PRESSURE ABNORMAL
     Dosage: 1 DOSAGE FORM, QD (1 TABLET, MORNING)
     Dates: start: 201912
  6. BUMETANIDE. [Suspect]
     Active Substance: BUMETANIDE
     Indication: DIURETIC THERAPY
     Dosage: UNK
  7. SAXAGLIPTIN [Concomitant]
     Active Substance: SAXAGLIPTIN
     Dosage: 1 DOSAGE FORM, QD (1 TABLET, MORNING)
  8. RAMIPRIL. [Suspect]
     Active Substance: RAMIPRIL
     Indication: BLOOD PRESSURE ABNORMAL
     Dosage: 2 DOSAGE FORM, QD (1 CAPSULE TWICE A DAY FOR THE PAST 3 YEARS)
  9. RAMIPRIL. [Suspect]
     Active Substance: RAMIPRIL
     Dosage: 5 MILLIGRAM, QD (5 MG ONCE A DAY)
  10. RAMIPRIL. [Suspect]
     Active Substance: RAMIPRIL
     Dosage: AT LOWER DOSE, GRADUALLY INCREASED TO 5MG CAPSULES
  11. GLICLAZIDE [Concomitant]
     Active Substance: GLICLAZIDE
     Dosage: 2 DOSAGE FORM, QD (1 TABLET, TWICE A DAY)

REACTIONS (6)
  - Mobility decreased [Recovering/Resolving]
  - Dizziness [Recovering/Resolving]
  - Circulatory collapse [Unknown]
  - Prescribed overdose [Unknown]
  - Anaemia [Not Recovered/Not Resolved]
  - Asthenia [Recovering/Resolving]

NARRATIVE: CASE EVENT DATE: 202001
